FAERS Safety Report 7564653-1 (Version None)
Quarter: 2011Q2

REPORT INFORMATION
  Report Type: 
  Country: None (occurrence: None)
  Receive Date: 20110622
  Receipt Date: 20101220
  Transmission Date: 20111010
  Serious: Yes (Other)
  Sender: FDA-Public Use
  Company Number: US-MYLANLABS-2010S1014143

PATIENT
  Age: 27 Year
  Sex: Female
  Weight: 83.01 kg

DRUGS (6)
  1. CLOZAPINE [Suspect]
     Indication: BIPOLAR DISORDER
     Dates: end: 20100901
  2. AVIANE-28 [Concomitant]
  3. ATROPINE [Concomitant]
     Dosage: ONE DROP EACH SIDE OF UNDER THE TONGUE
     Route: 060
  4. CLOZAPINE [Suspect]
     Dates: start: 20100901
  5. CLOZAPINE [Suspect]
     Route: 048
     Dates: end: 20100928
  6. CALCIUM CARBONATE [Concomitant]

REACTIONS (1)
  - GRANULOCYTOPENIA [None]
